FAERS Safety Report 6092935-1 (Version None)
Quarter: 2009Q1

REPORT INFORMATION
  Report Type: 
  Country: None (occurrence: None)
  Receive Date: 20090223
  Receipt Date: 20090205
  Transmission Date: 20090719
  Serious: Yes (Other)
  Sender: FDA-Public Use
  Company Number: 2009S1000056

PATIENT
  Sex: Female

DRUGS (2)
  1. SORIATANE [Suspect]
     Indication: PSORIASIS
     Dosage: 35 MG; QD; PO, 25 MG; QD; PO
     Route: 048
     Dates: start: 20070501, end: 20070701
  2. SORIATANE [Suspect]
     Indication: PSORIASIS
     Dosage: 35 MG; QD; PO, 25 MG; QD; PO
     Route: 048
     Dates: start: 20070701, end: 20070701

REACTIONS (3)
  - ABORTION INDUCED [None]
  - DRUG EXPOSURE DURING PREGNANCY [None]
  - TWIN PREGNANCY [None]
